FAERS Safety Report 14912231 (Version 1)
Quarter: 2018Q2

REPORT INFORMATION
  Report Type: Other
  Country: TR (occurrence: TR)
  Receive Date: 20180518
  Receipt Date: 20180518
  Transmission Date: 20180711
  Serious: Yes (Other)
  Sender: FDA-Public Use
  Company Number: TR-MERCK KGAA-2048050

PATIENT
  Age: 11 Year
  Sex: Female
  Weight: 33 kg

DRUGS (3)
  1. PROPRANOLOL [Suspect]
     Active Substance: PROPRANOLOL HYDROCHLORIDE
  2. L-THYROXINE [Suspect]
     Active Substance: LEVOTHYROXINE
  3. NOVOTHYROX [Suspect]
     Active Substance: LEVOTHYROXINE SODIUM
     Indication: BASEDOW^S DISEASE

REACTIONS (1)
  - Thrombocytopenia [Recovered/Resolved]
